FAERS Safety Report 5871641-X (Version None)
Quarter: 2008Q3

REPORT INFORMATION
  Report Type: 
  Country: None (occurrence: None)
  Receive Date: 20080902
  Receipt Date: 20080110
  Transmission Date: 20090109
  Serious: Yes (Hospitalization)
  Sender: FDA-Public Use
  Company Number: 2008AL009339

PATIENT
  Age: 60 Year
  Sex: Male

DRUGS (3)
  1. METFORMIN HCL [Suspect]
     Dosage: 50000 MG; X1; PO
     Route: 048
  2. IBUPROFEN [Suspect]
     Dosage: 8000 MG, X1; PO
     Route: 048
  3. GLYBURIDE [Suspect]
     Dosage: 100 MG, X1;

REACTIONS (13)
  - ABDOMINAL PAIN [None]
  - AGITATION [None]
  - ANURIA [None]
  - APNOEA [None]
  - DIALYSIS [None]
  - LACTIC ACIDOSIS [None]
  - MULTIPLE DRUG OVERDOSE [None]
  - POISONING [None]
  - POLYURIA [None]
  - SOMNOLENCE [None]
  - VASCULAR RESISTANCE SYSTEMIC DECREASED [None]
  - VENTRICULAR FIBRILLATION [None]
  - VOMITING [None]
